FAERS Safety Report 12924897 (Version 1)
Quarter: 2016Q4

REPORT INFORMATION
  Report Type: Spontaneous
  Country: US (occurrence: US)
  Receive Date: 20161109
  Receipt Date: 20161109
  Transmission Date: 20170207
  Serious: No
  Sender: FDA-Public Use
  Company Number: US-BAUSCH-BL-2016-019951

PATIENT
  Age: 21 Year
  Sex: Female

DRUGS (1)
  1. RUCONEST [Suspect]
     Active Substance: HUMAN C1-ESTERASE INHIBITOR
     Indication: HEREDITARY ANGIOEDEMA
     Dosage: PRN
     Route: 042
     Dates: start: 201603

REACTIONS (2)
  - Pain [Unknown]
  - Malaise [Unknown]

NARRATIVE: CASE EVENT DATE: 201607
